FAERS Safety Report 7678256-1 (Version None)
Quarter: 2011Q3

REPORT INFORMATION
  Report Type: 
  Country: None (occurrence: None)
  Receive Date: 20110811
  Receipt Date: 20110801
  Transmission Date: 20111222
  Serious: Yes (Hospitalization)
  Sender: FDA-Public Use
  Company Number: US-JNJFOC-20110307973

PATIENT
  Sex: Male

DRUGS (3)
  1. REMICADE [Suspect]
     Route: 042
     Dates: start: 20050224
  2. REMICADE [Suspect]
     Dosage: 34TH DOSE
     Route: 042
     Dates: start: 20090928
  3. REMICADE [Suspect]
     Indication: CROHN'S DISEASE
     Dosage: TOTAL 3 DOSES
     Route: 042
     Dates: start: 20060405

REACTIONS (1)
  - ABDOMINAL PAIN [None]
